FAERS Safety Report 6288946-3 (Version None)
Quarter: 2009Q3

REPORT INFORMATION
  Report Type: 
  Country: None (occurrence: None)
  Receive Date: 20090729
  Receipt Date: 20090723
  Transmission Date: 20100115
  Serious: Yes (Death)
  Sender: FDA-Public Use
  Company Number: US-SANOFI-SYNTHELABO-A03200902889

PATIENT
  Age: 56 Year
  Sex: Female

DRUGS (4)
  1. INTEGRILIN [Suspect]
     Indication: CORONARY ARTERY DISEASE
     Dosage: 5.1 ML/HOUR
     Route: 042
     Dates: start: 20090615, end: 20090616
  2. HEPARIN UPSTREAM [Suspect]
     Indication: DRUG USE FOR UNKNOWN INDICATION
     Dosage: UNK
     Route: 065
     Dates: end: 20090619
  3. ANGIOMAX [Suspect]
     Indication: STENT PLACEMENT
     Dosage: 12.5ML BOLUS THEN 5MG/ML INFUSION
     Route: 065
     Dates: start: 20090616, end: 20090616
  4. PLAVIX [Suspect]
     Indication: STENT PLACEMENT
     Route: 048
     Dates: start: 20090616, end: 20090616

REACTIONS (6)
  - CARDIO-RESPIRATORY ARREST [None]
  - CONVULSION [None]
  - HAEMOTHORAX [None]
  - PLEURAL EFFUSION [None]
  - RETROPERITONEAL HAEMORRHAGE [None]
  - UNRESPONSIVE TO STIMULI [None]
